FAERS Safety Report 23328450 (Version 4)
Quarter: 2024Q1

REPORT INFORMATION
  Report Type: Spontaneous
  Country: US (occurrence: US)
  Receive Date: 20231221
  Receipt Date: 20240318
  Transmission Date: 20240409
  Serious: Yes (Hospitalization, Other)
  Sender: FDA-Public Use
  Company Number: US-JNJFOC-20231228401

PATIENT
  Age: 67 Year
  Sex: Female
  Weight: 93.9 kg

DRUGS (59)
  1. UPTRAVI [Suspect]
     Active Substance: SELEXIPAG
     Indication: Pulmonary arterial hypertension
     Route: 048
     Dates: start: 202210
  2. UPTRAVI [Suspect]
     Active Substance: SELEXIPAG
     Route: 048
     Dates: start: 20231109, end: 20231226
  3. UPTRAVI [Suspect]
     Active Substance: SELEXIPAG
     Route: 048
  4. TYLENOL [Concomitant]
     Active Substance: ACETAMINOPHEN
     Indication: Pain
     Route: 048
  5. TYLENOL [Concomitant]
     Active Substance: ACETAMINOPHEN
     Indication: Pyrexia
     Dosage: 1HR PRIOR TO TAKING UPTRAVI
     Route: 048
     Dates: start: 20230504, end: 20240114
  6. PROAIR HFA [Concomitant]
     Active Substance: ALBUTEROL SULFATE
     Dosage: 108 (90 BASE) MCG/PUFF INHALER; USE 2 PUFFS EVERY 6 HOURS AS NEEDED
     Route: 055
     Dates: start: 20220817
  7. ZYLOPRIM [Concomitant]
     Active Substance: ALLOPURINOL
     Route: 048
     Dates: start: 20230915
  8. ELIQUIS [Concomitant]
     Active Substance: APIXABAN
     Route: 048
     Dates: start: 20230831
  9. LIPITOR [Concomitant]
     Active Substance: ATORVASTATIN CALCIUM
     Dosage: IN THE EVENING
     Route: 048
     Dates: start: 20231129, end: 20240108
  10. CELEXA [Concomitant]
     Active Substance: CITALOPRAM HYDROBROMIDE
     Route: 048
     Dates: start: 20230818
  11. ZETIA [Concomitant]
     Active Substance: EZETIMIBE
     Dosage: EVERY EVENING
     Route: 048
     Dates: start: 20230601
  12. FOLVITE [Concomitant]
     Active Substance: FOLIC ACID
     Route: 048
     Dates: start: 20230915
  13. LEVOTHYROXINE [Concomitant]
     Active Substance: LEVOTHYROXINE\LEVOTHYROXINE SODIUM
     Route: 048
     Dates: start: 20231026
  14. IMODIUM [Concomitant]
     Active Substance: LOPERAMIDE HYDROCHLORIDE
     Indication: Diarrhoea
     Route: 048
     Dates: start: 20230915
  15. MAGNESIUM OXIDE [Concomitant]
     Active Substance: MAGNESIUM OXIDE
     Route: 048
     Dates: start: 20230713, end: 20240114
  16. TOPROL XL [Concomitant]
     Active Substance: METOPROLOL SUCCINATE
     Route: 048
  17. BACTROBAN [Concomitant]
     Active Substance: MUPIROCIN CALCIUM
     Dosage: APPLY 0.5 INCHES TOPICALLY 3 TIMES DAILY
     Route: 061
  18. ZOFRAN [Concomitant]
     Active Substance: ONDANSETRON HYDROCHLORIDE
     Indication: Nausea
     Route: 048
  19. ZOFRAN [Concomitant]
     Active Substance: ONDANSETRON HYDROCHLORIDE
     Indication: Vomiting
  20. PROTONIX [Concomitant]
     Active Substance: PANTOPRAZOLE SODIUM
     Route: 048
  21. POTASSIUM CHLORIDE [Concomitant]
     Active Substance: POTASSIUM CHLORIDE
     Route: 048
  22. PROCHLORPERAZINE [Concomitant]
     Active Substance: PROCHLORPERAZINE
     Indication: Nausea
     Route: 048
  23. PROCHLORPERAZINE [Concomitant]
     Active Substance: PROCHLORPERAZINE
     Indication: Vomiting
  24. REQUIP [Concomitant]
     Active Substance: ROPINIROLE HYDROCHLORIDE
     Route: 048
  25. ADCIRCA [Concomitant]
     Active Substance: TADALAFIL
     Route: 048
  26. DEMADEX [Concomitant]
     Active Substance: TORSEMIDE
     Route: 048
  27. KENALOG [Concomitant]
     Active Substance: TRIAMCINOLONE ACETONIDE
     Route: 061
  28. SENOKOT-S [Concomitant]
     Active Substance: DOCUSATE SODIUM\SENNOSIDES
  29. DIETARY SUPPLEMENT [Concomitant]
     Active Substance: DIETARY SUPPLEMENT
  30. VERSED [Concomitant]
     Active Substance: MIDAZOLAM HYDROCHLORIDE
  31. SUBLIMAZE [Concomitant]
     Active Substance: FENTANYL CITRATE
  32. ZEMURON [Concomitant]
     Active Substance: ROCURONIUM BROMIDE
  33. SODIUM LACTATE [Concomitant]
     Active Substance: SODIUM LACTATE
  34. DECADRON [Concomitant]
     Active Substance: DEXAMETHASONE
  35. ZOFRAN [Concomitant]
     Active Substance: ONDANSETRON HYDROCHLORIDE
  36. PHENYLEPHRINE [Concomitant]
     Active Substance: PHENYLEPHRINE HYDROCHLORIDE
  37. ANCEF [Concomitant]
     Active Substance: CEFAZOLIN SODIUM
  38. DULCOLAX (BISACODYL) [Concomitant]
     Active Substance: BISACODYL
  39. MYCOSTATIN [Concomitant]
     Active Substance: NYSTATIN
  40. GLYCOLAX [Concomitant]
     Active Substance: POLYETHYLENE GLYCOL 3350
  41. HUMULIN N [Concomitant]
     Active Substance: INSULIN HUMAN
  42. SODIUM CHLORIDE [Concomitant]
     Active Substance: SODIUM CHLORIDE
  43. CELEXA [Concomitant]
     Active Substance: CITALOPRAM HYDROBROMIDE
  44. REQUIP [Concomitant]
     Active Substance: ROPINIROLE HYDROCHLORIDE
  45. DUONEB [Concomitant]
     Active Substance: ALBUTEROL SULFATE\IPRATROPIUM BROMIDE
  46. PREVACID [Concomitant]
     Active Substance: LANSOPRAZOLE
  47. NOVOLOG [Concomitant]
     Active Substance: INSULIN ASPART
  48. PRECEDEX [Concomitant]
     Active Substance: DEXMEDETOMIDINE HYDROCHLORIDE
  49. ROXICODONE [Concomitant]
     Active Substance: OXYCODONE HYDROCHLORIDE
  50. SODIUM PHOSPHATE [Concomitant]
     Active Substance: SODIUM PHOSPHATE
  51. MAGNESIUM SULFATE [Concomitant]
     Active Substance: MAGNESIUM SULFATE\MAGNESIUM SULFATE HEPTAHYDRATE
  52. CALCIUM GLUCONATE [Concomitant]
     Active Substance: CALCIUM GLUCONATE
  53. DIPRIVAN [Concomitant]
     Active Substance: ISOPROPYL ALCOHOL\PROPOFOL
  54. LEVOPHED [Concomitant]
     Active Substance: NOREPINEPHRINE BITARTRATE
  55. LIPITOR [Concomitant]
     Active Substance: ATORVASTATIN CALCIUM
  56. ZETIA [Concomitant]
     Active Substance: EZETIMIBE
  57. FOLVITE [Concomitant]
     Active Substance: FOLIC ACID
  58. DEXTROSE [Concomitant]
     Active Substance: DEXTROSE\DEXTROSE MONOHYDRATE
  59. GLUCAGON [Concomitant]
     Active Substance: GLUCAGON\GLUCAGON HYDROCHLORIDE\WATER

REACTIONS (7)
  - Acute respiratory failure [Unknown]
  - Respiratory syncytial virus infection [Unknown]
  - Enterovirus infection [Unknown]
  - Cardiac failure congestive [Unknown]
  - Pneumonia bacterial [Unknown]
  - Pericardial effusion [Unknown]
  - Hyperglycaemia [Unknown]

NARRATIVE: CASE EVENT DATE: 20231201
